FAERS Safety Report 5467644-X (Version None)
Quarter: 2007Q3

REPORT INFORMATION
  Report Type: 
  Country: None (occurrence: None)
  Receive Date: 20070921
  Receipt Date: 20070910
  Transmission Date: 20080115
  Serious: Yes (Hospitalization)
  Sender: FDA-Public Use
  Company Number: SPV1-2007-04098

PATIENT
  Age: 9 Year
  Sex: Male

DRUGS (4)
  1. ELAPRASE [Suspect]
     Indication: MUCOPOLYSACCHARIDOSIS II
     Dosage: 16 MG, 1X/WEEK, IV DRIP
     Route: 041
     Dates: start: 20060901
  2. PREDNISONE TAB [Concomitant]
  3. CLARITIN [Concomitant]
  4. ZANTAC 150 [Concomitant]

REACTIONS (15)
  - ADENOTONSILLECTOMY [None]
  - ANAPHYLACTIC REACTION [None]
  - CYANOSIS [None]
  - DYSPNOEA [None]
  - ERYTHEMA [None]
  - INFUSION RELATED REACTION [None]
  - INJECTION SITE EXTRAVASATION [None]
  - LIP SWELLING [None]
  - PYREXIA [None]
  - STRIDOR [None]
  - SWELLING FACE [None]
  - SWOLLEN TONGUE [None]
  - TREMOR [None]
  - UPPER RESPIRATORY TRACT INFECTION [None]
  - WHEEZING [None]
